FAERS Safety Report 20778538 (Version 1)
Quarter: 2022Q2

REPORT INFORMATION
  Report Type: Spontaneous
  Country: US (occurrence: US)
  Receive Date: 20220503
  Receipt Date: 20220503
  Transmission Date: 20220721
  Serious: No
  Sender: FDA-Public Use
  Company Number: US-PFIZER INC-202200596806

PATIENT
  Age: 89 Year
  Sex: Male
  Weight: 79.38 kg

DRUGS (11)
  1. LIPITOR [Suspect]
     Active Substance: ATORVASTATIN CALCIUM
     Indication: Blood cholesterol increased
     Dosage: 10 MG, 1X/DAY
     Route: 048
  2. ELIQUIS [Suspect]
     Active Substance: APIXABAN
     Indication: Thrombosis prophylaxis
     Dosage: 5 MG, 2X/DAY
     Route: 048
  3. CELEXA [Suspect]
     Active Substance: CITALOPRAM HYDROBROMIDE
     Indication: Depression
     Dosage: 10 MG, 1X/DAY
     Route: 048
  4. CARBIDOPA\LEVODOPA [Suspect]
     Active Substance: CARBIDOPA\LEVODOPA
     Indication: Dysphagia
     Dosage: TWO PILLS ONCE A DAY IN THE MORNING
     Route: 048
  5. CARBIDOPA\LEVODOPA [Suspect]
     Active Substance: CARBIDOPA\LEVODOPA
     Indication: Parkinsonism
  6. TYLENOL EXTRA STRENGTH [Suspect]
     Active Substance: ACETAMINOPHEN
     Indication: Back pain
     Dosage: 500 MG, 2X/DAY
     Route: 048
  7. VITAMIN B12 [Suspect]
     Active Substance: CYANOCOBALAMIN
     Dosage: ONCE A DAY OR 3-4 TIMES A WEEK
  8. IRON [Suspect]
     Active Substance: IRON
     Indication: Anaemia
     Dosage: UNK, 1X/DAY
     Route: 048
  9. CALCIUM [Suspect]
     Active Substance: CALCIUM
     Dosage: UNK
     Dates: start: 2021
  10. VITAMIN D NOS [Suspect]
     Active Substance: VITAMIN D NOS
     Dosage: UNK
  11. LASIX [Suspect]
     Active Substance: FUROSEMIDE
     Indication: Swelling
     Dosage: 20 MG (AVERAGE OF ONE A MONTH)
     Route: 048
     Dates: start: 2019

REACTIONS (7)
  - Wrong technique in product usage process [Unknown]
  - Dysphagia [Unknown]
  - Oral pain [Unknown]
  - Stomatitis [Unknown]
  - Oropharyngeal pain [Unknown]
  - Throat irritation [Unknown]
  - Glossodynia [Unknown]
